FAERS Safety Report 13107306 (Version 1)
Quarter: 2017Q1

REPORT INFORMATION
  Report Type: Spontaneous
  Country: FR (occurrence: FR)
  Receive Date: 20170112
  Receipt Date: 20170112
  Transmission Date: 20170428
  Serious: Yes (Hospitalization)
  Sender: FDA-Public Use
  Company Number: FR-009507513-1104FRA00116

PATIENT
  Age: 61 Year
  Sex: Male

DRUGS (6)
  1. PREVISCAN [Suspect]
     Active Substance: FLUINDIONE
     Dosage: 1 DF, QD
     Route: 048
     Dates: start: 2008
  2. KARDEGIC [Suspect]
     Active Substance: ASPIRIN LYSINE
     Dosage: 1 DF, QD
     Route: 048
     Dates: start: 2008
  3. PARIET [Suspect]
     Active Substance: RABEPRAZOLE SODIUM
     Route: 048
     Dates: start: 2004
  4. COVERSYL (PERINDOPRIL ARGININE) [Suspect]
     Active Substance: PERINDOPRIL
     Route: 048
     Dates: start: 20081001
  5. CARVEDILOL. [Suspect]
     Active Substance: CARVEDILOL
     Dosage: 2 DF, QD
     Route: 048
     Dates: start: 200810
  6. INEGY [Suspect]
     Active Substance: EZETIMIBE\SIMVASTATIN
     Dosage: 1 UNK, QD
     Route: 048
     Dates: start: 200910, end: 201005

REACTIONS (1)
  - Dermatitis psoriasiform [Recovering/Resolving]
